FAERS Safety Report 11127396 (Version 1)
Quarter: 2015Q2

REPORT INFORMATION
  Report Type: Spontaneous
  Country: US (occurrence: US)
  Receive Date: 20150521
  Receipt Date: 20150521
  Transmission Date: 20150821
  Serious: No
  Sender: FDA-Public Use
  Company Number: US-BAYER-2015-253220

PATIENT
  Age: 50 Year
  Sex: Female
  Weight: 106.58 kg

DRUGS (2)
  1. ZYRTEC [CETIRIZINE HYDROCHLORIDE,PSEUDOEPHEDRINE HYDROCHLORIDE] [Concomitant]
     Dosage: UNK
  2. OXYTROL FOR WOMEN [Suspect]
     Active Substance: OXYBUTYNIN
     Indication: HYPERTONIC BLADDER
     Dosage: 1 DOSE, EVERY 4 DAYS
     Route: 061
     Dates: start: 201502

REACTIONS (1)
  - Glucose urine present [Unknown]

NARRATIVE: CASE EVENT DATE: 20150519
